FAERS Safety Report 6516076-1 (Version None)
Quarter: 2009Q4

REPORT INFORMATION
  Report Type: 
  Country: None (occurrence: None)
  Receive Date: 20091223
  Receipt Date: 20091208
  Transmission Date: 20100525
  Serious: Yes (Hospitalization)
  Sender: FDA-Public Use
  Company Number: US-ABBOTT-09P-163-0612997-00

PATIENT
  Sex: Male

DRUGS (6)
  1. LUPRON DEPOT [Suspect]
     Indication: PROSTATE CANCER
     Dates: start: 20090831, end: 20090831
  2. COUMADIN [Concomitant]
     Indication: DRUG USE FOR UNKNOWN INDICATION
  3. FLOMAX [Concomitant]
     Indication: DRUG USE FOR UNKNOWN INDICATION
  4. SYMBICORT [Concomitant]
     Indication: DRUG USE FOR UNKNOWN INDICATION
  5. ALBUTEROL [Concomitant]
     Indication: DRUG USE FOR UNKNOWN INDICATION
  6. NORVASC [Concomitant]
     Indication: DRUG USE FOR UNKNOWN INDICATION

REACTIONS (1)
  - ABSCESS STERILE [None]
